FAERS Safety Report 11023220 (Version 2)
Quarter: 2015Q2

REPORT INFORMATION
  Report Type: Spontaneous
  Country: US (occurrence: US)
  Receive Date: 20150413
  Receipt Date: 20150525
  Transmission Date: 20150821
  Serious: Yes (Other)
  Sender: FDA-Public Use
  Company Number: US-JNJFOC-20110609194

PATIENT
  Age: 59 Year
  Sex: Male

DRUGS (3)
  1. LEVAQUIN [Suspect]
     Active Substance: LEVOFLOXACIN
     Indication: PERIRECTAL ABSCESS
     Route: 048
     Dates: start: 20040305, end: 20090622
  2. LEVAQUIN [Suspect]
     Active Substance: LEVOFLOXACIN
     Indication: INFECTION
     Route: 048
     Dates: start: 20040305, end: 20090622
  3. LEVAQUIN [Suspect]
     Active Substance: LEVOFLOXACIN
     Indication: SURGERY
     Route: 048
     Dates: start: 20040305, end: 20090622

REACTIONS (2)
  - Tendonitis [Unknown]
  - Tendon disorder [Unknown]

NARRATIVE: CASE EVENT DATE: 200906
